FAERS Safety Report 4796584-4 (Version None)
Quarter: 2005Q4

REPORT INFORMATION
  Report Type: 
  Country: None (occurrence: None)
  Receive Date: 20051011
  Receipt Date: 20050105
  Transmission Date: 20060501
  Serious: Yes (Other)
  Sender: FDA-Public Use
  Company Number: US-JNJFOC-20050101554

PATIENT
  Age: 68 Year
  Sex: Female
  Weight: 90.2658 kg

DRUGS (4)
  1. ULTRACET [Suspect]
     Indication: OSTEOARTHRITIS
     Dosage: ORAL
     Route: 048
  2. GLYBURIDE [Concomitant]
  3. ACTON (CORTICOTROPIN) [Concomitant]
  4. AVALID (KARVEA HCT) [Concomitant]

REACTIONS (2)
  - BLOOD PRESSURE INCREASED [None]
  - SWELLING [None]
